APPROVED DRUG PRODUCT: NORETHINDRONE ACETATE AND ETHINYL ESTRADIOL AND FERROUS FUMARATE
Active Ingredient: ETHINYL ESTRADIOL; NORETHINDRONE ACETATE
Strength: 0.02MG;1MG
Dosage Form/Route: TABLET;ORAL
Application: A210369 | Product #001 | TE Code: AB
Applicant: GLENMARK PHARMACEUTICALS LTD
Approved: Dec 26, 2017 | RLD: No | RS: Yes | Type: RX